FAERS Safety Report 6254250-2 (Version None)
Quarter: 2009Q2

REPORT INFORMATION
  Report Type: 
  Country: None (occurrence: None)
  Receive Date: 20090630
  Receipt Date: 20090630
  Transmission Date: 20091009
  Serious: Yes (Other)
  Sender: FDA-Public Use
  Company Number: None

PATIENT
  Age: 81 Year
  Sex: Female
  Weight: 65.7716 kg

DRUGS (3)
  1. PANTOPRAZOLE SODIUM [Suspect]
     Indication: BARRETT'S OESOPHAGUS
     Dosage: ONE TABLET DAILY
     Dates: start: 20080707, end: 20081104
  2. CARBAMAZAPINE -TEGRETOL- [Concomitant]
  3. LOVASTATIN [Concomitant]

REACTIONS (1)
  - INTESTINAL HAEMORRHAGE [None]
